FAERS Safety Report 6211057-X (Version None)
Quarter: 2009Q2

REPORT INFORMATION
  Report Type: 
  Country: None (occurrence: None)
  Receive Date: 20090528
  Receipt Date: 20090522
  Transmission Date: 20091009
  Serious: Yes (Hospitalization)
  Sender: FDA-Public Use
  Company Number: 2009SP007877

PATIENT
  Age: 65 Year
  Sex: Female

DRUGS (17)
  1. TEMOZOLOMIDE [Suspect]
     Indication: METASTATIC MALIGNANT MELANOMA
     Dosage: 300 MG; QD; PO, 200 MG/M2; QD
     Route: 048
     Dates: start: 20090218, end: 20090222
  2. TEMOZOLOMIDE [Suspect]
     Indication: METASTATIC MALIGNANT MELANOMA
     Dosage: 300 MG; QD; PO, 200 MG/M2; QD
     Route: 048
     Dates: start: 20090318
  3. ABT-888 (INVESTIGATIONAL DRUG) [Suspect]
     Indication: METASTATIC MALIGNANT MELANOMA
     Dosage: 40 MG; BID; PO, 40 MG; QD
     Route: 048
     Dates: start: 20090218, end: 20090224
  4. ABT-888 (INVESTIGATIONAL DRUG) [Suspect]
     Indication: METASTATIC MALIGNANT MELANOMA
     Dosage: 40 MG; BID; PO, 40 MG; QD
     Route: 048
     Dates: start: 20090318
  5. LEVOTHYROXINE SODIUM (CON.) [Concomitant]
  6. RISEDRONATE SODIUM (CON.) [Concomitant]
  7. IBUPROFEN /00109205/ (CON.) [Concomitant]
  8. METHOCARBAMOL /00100501/ (CON.) [Concomitant]
  9. VICODIN (CON.) [Concomitant]
  10. CALCIUM CARBONATE (CON.) [Concomitant]
  11. LORAZEPAM (CON.) [Concomitant]
  12. SENNA ALEXANDRINA (CON.) [Concomitant]
  13. DOCUSATE SODIUM (CON.) [Concomitant]
  14. HYDROCHLOROTHIAZIDE (CON.) [Concomitant]
  15. NORGESIC /00070401/ (CON.) [Concomitant]
  16. DEXAMETHASONE (CON.) [Concomitant]
  17. ONDANSETRON (CON.) [Concomitant]

REACTIONS (4)
  - DEHYDRATION [None]
  - NAUSEA [None]
  - NEUTROPENIA [None]
  - VOMITING [None]
